FAERS Safety Report 9753808 (Version 1)
Quarter: 2013Q4

REPORT INFORMATION
  Report Type: Spontaneous
  Country: US (occurrence: US)
  Receive Date: 20131213
  Receipt Date: 20131213
  Transmission Date: 20140711
  Serious: No
  Sender: FDA-Public Use
  Company Number: US-GILEAD-2010-0027491

PATIENT
  Sex: Female
  Weight: 86.64 kg

DRUGS (15)
  1. LETAIRIS [Suspect]
     Indication: PULMONARY ARTERIAL HYPERTENSION
     Route: 048
     Dates: start: 20090719
  2. REVATIO [Concomitant]
  3. VENTAVIS [Concomitant]
  4. COUMADIN [Concomitant]
  5. AMITRIPTYLINE [Concomitant]
  6. TRAZODONE [Concomitant]
  7. PREDNISONE [Concomitant]
  8. ADVAIR [Concomitant]
  9. SPIRIVA [Concomitant]
  10. RHINOCORT [Concomitant]
  11. PROAIR HFA [Concomitant]
  12. SINGULAIR [Concomitant]
  13. DOXYCYCLINE [Concomitant]
  14. PRILOSEC [Concomitant]
  15. ZANTAC [Concomitant]

REACTIONS (2)
  - Headache [Unknown]
  - Hot flush [Unknown]
